FAERS Safety Report 8051177-0 (Version None)
Quarter: 2012Q1

REPORT INFORMATION
  Report Type: 
  Country: None (occurrence: None)
  Receive Date: 20120117
  Receipt Date: 20120116
  Transmission Date: 20120608
  Serious: Yes (Other)
  Sender: FDA-Public Use
  Company Number: PHFR2011IE007388

PATIENT
  Sex: Male

DRUGS (2)
  1. HYOSCINE [Concomitant]
     Dosage: 600 MG DAILY
     Route: 048
  2. CLOZARIL [Suspect]
     Indication: SCHIZOPHRENIA, PARANOID TYPE
     Dosage: 350 MG, DAILY
     Route: 048
     Dates: start: 20060328

REACTIONS (3)
  - NASOPHARYNGITIS [None]
  - VOMITING [None]
  - UPPER RESPIRATORY TRACT INFECTION [None]
